FAERS Safety Report 23548032 (Version 1)
Quarter: 2024Q1

REPORT INFORMATION
  Report Type: Spontaneous
  Country: US (occurrence: US)
  Receive Date: 20240221
  Receipt Date: 20240221
  Transmission Date: 20240410
  Serious: No
  Sender: FDA-Public Use
  Company Number: US-APOTEX-2023AP014837

PATIENT
  Sex: Male

DRUGS (1)
  1. DESMOPRESSIN ACETATE [Suspect]
     Active Substance: DESMOPRESSIN ACETATE
     Indication: Enuresis
     Dosage: 4 DOSAGE FORM, (2 SPRAYS IN EACH NOSTRIL BEFORE BED)
     Route: 045
     Dates: start: 20211028

REACTIONS (2)
  - Product quality issue [Unknown]
  - Nasal discomfort [Recovered/Resolved]
